FAERS Safety Report 9782768 (Version 1)
Quarter: 2013Q4

REPORT INFORMATION
  Report Type: Spontaneous
  Country: US (occurrence: US)
  Receive Date: 20131226
  Receipt Date: 20131226
  Transmission Date: 20140711
  Serious: No
  Sender: FDA-Public Use
  Company Number: US-ABBVIE-13P-163-1098072-00

PATIENT
  Age: 78 Year
  Sex: Male
  Weight: 65.83 kg

DRUGS (9)
  1. LUPRON DEPOT [Suspect]
     Indication: PROSTATE CANCER
     Dosage: 1ST INJECTION
     Route: 030
     Dates: start: 201112, end: 201112
  2. LUPRON DEPOT [Suspect]
     Dosage: 2ND INJECTION
     Route: 030
     Dates: start: 20130501
  3. SINAMET [Concomitant]
     Indication: PRODUCT USED FOR UNKNOWN INDICATION
  4. ARTANE [Concomitant]
     Indication: PARKINSON^S DISEASE
     Dosage: LOW DOSE
  5. LISINOPRIL [Concomitant]
     Indication: HYPERTENSION
  6. ATENOLOL [Concomitant]
     Indication: HYPERTENSION
  7. HYDROCHLOROTHIAZIDE [Concomitant]
     Indication: PRODUCT USED FOR UNKNOWN INDICATION
  8. POTASSIUM [Concomitant]
     Indication: MINERAL SUPPLEMENTATION
  9. MAGNESIUM [Concomitant]
     Indication: MINERAL SUPPLEMENTATION

REACTIONS (1)
  - Blood pressure increased [Not Recovered/Not Resolved]
